FAERS Safety Report 18906173 (Version 1)
Quarter: 2021Q1

REPORT INFORMATION
  Report Type: Spontaneous
  Country: US (occurrence: US)
  Receive Date: 20210217
  Receipt Date: 20210217
  Transmission Date: 20210420
  Serious: Yes (Other)
  Sender: FDA-Public Use
  Company Number: US-NOVEN PHARMACEUTICALS, INC.-2020US009262

PATIENT
  Sex: Female
  Weight: 62.59 kg

DRUGS (4)
  1. DAYTRANA [Suspect]
     Active Substance: METHYLPHENIDATE
     Indication: OFF LABEL USE
     Dosage: 30 MG/9 HOURS, DAILY
     Route: 062
  2. DAYTRANA [Suspect]
     Active Substance: METHYLPHENIDATE
     Indication: DEPRESSION
     Dosage: 20 MG/ 9HOURS, DAILY
     Route: 062
     Dates: start: 202006
  3. DAYTRANA [Suspect]
     Active Substance: METHYLPHENIDATE
     Dosage: UNK
     Route: 062
     Dates: start: 2015
  4. WELLBUTRIN [Concomitant]
     Active Substance: BUPROPION HYDROCHLORIDE
     Indication: DEPRESSION
     Dosage: 2 TABLETS IN THE MORNING AND 1 IN THE AFTERNOON

REACTIONS (7)
  - Tension [Recovered/Resolved]
  - Off label use [Not Recovered/Not Resolved]
  - Device issue [Not Recovered/Not Resolved]
  - Product quality issue [Not Recovered/Not Resolved]
  - Feeling jittery [Recovered/Resolved]
  - Device breakage [Not Recovered/Not Resolved]
  - Product administration error [Not Recovered/Not Resolved]

NARRATIVE: CASE EVENT DATE: 2020
